FAERS Safety Report 5208955-2 (Version None)
Quarter: 2007Q1

REPORT INFORMATION
  Report Type: 
  Country: None (occurrence: None)
  Receive Date: 20070111
  Receipt Date: 20070111
  Transmission Date: 20070707
  Serious: Yes (Hospitalization)
  Sender: FDA-Public Use
  Company Number: None

PATIENT
  Age: 45 Year
  Sex: Male
  Weight: 84.369 kg

DRUGS (11)
  1. ACYCLOVIR [Suspect]
     Indication: ENCEPHALITIS HERPES
     Dosage: 850 MG  Q8HRS  IV
     Route: 042
  2. ACETAMINOPHEN [Concomitant]
  3. DEXTROSE [Concomitant]
  4. GLUCAGON [Concomitant]
  5. IBUPROFEN [Concomitant]
  6. REGULAR INSULIN [Concomitant]
  7. SODIUM CHLORIDE [Concomitant]
  8. POTASSIUM CHLORIDE [Concomitant]
  9. PROMETHAZINE [Concomitant]
  10. SENNOSIDES [Concomitant]
  11. TEMAZEPAM [Concomitant]

REACTIONS (2)
  - RENAL FAILURE ACUTE [None]
  - RENAL TUBULAR DISORDER [None]
